FAERS Safety Report 4524355-2 (Version None)
Quarter: 2004Q4

REPORT INFORMATION
  Report Type: 
  Country: None (occurrence: None)
  Receive Date: 20041119
  Receipt Date: 20040728
  Transmission Date: 20050328
  Serious: No
  Sender: FDA-Public Use
  Company Number: 208142

PATIENT
  Sex: Female

DRUGS (2)
  1. RAPTIVA [Suspect]
     Indication: PSORIASIS
     Dosage: 1 MG/KG, 1/WEEK, SUBCUTANEOUS
     Route: 058
     Dates: start: 20040501
  2. METHOTREXATE [Concomitant]

REACTIONS (2)
  - FATIGUE [None]
  - MALAISE [None]
